FAERS Safety Report 10860823 (Version 2)
Quarter: 2015Q3

REPORT INFORMATION
  Report Type: Spontaneous
  Country: US (occurrence: US)
  Receive Date: 20150224
  Receipt Date: 20150819
  Transmission Date: 20151125
  Serious: Yes (Hospitalization)
  Sender: FDA-Public Use
  Company Number: US-GLAXOSMITHKLINE-US2015GSK022666

PATIENT
  Age: 61 Year
  Sex: Male

DRUGS (5)
  1. ADVAIR HFA [Suspect]
     Active Substance: FLUTICASONE PROPIONATE\SALMETEROL XINAFOATE
     Indication: PRODUCT USED FOR UNKNOWN INDICATION
  2. ADVAIR DISKUS [Suspect]
     Active Substance: FLUTICASONE PROPIONATE\SALMETEROL XINAFOATE
     Indication: CHRONIC OBSTRUCTIVE PULMONARY DISEASE
     Dosage: 1 PUFF(S), BID
     Route: 055
     Dates: start: 201308, end: 201407
  3. ADVIL [Concomitant]
     Active Substance: IBUPROFEN
  4. CORICIDIN HBP (ACETAMINOPHEN AND CHLORPHENIRAMINE MALEATE) [Concomitant]
  5. LISINOPRIL. [Concomitant]
     Active Substance: LISINOPRIL

REACTIONS (4)
  - Throat irritation [Unknown]
  - Dyspnoea [Not Recovered/Not Resolved]
  - Exposure to mould [Unknown]
  - Occupational exposure to dust [Unknown]

NARRATIVE: CASE EVENT DATE: 20140617
